FAERS Safety Report 15659050 (Version 3)
Quarter: 2018Q4

REPORT INFORMATION
  Report Type: Report from Study
  Country: None (occurrence: BE)
  Receive Date: 20181127
  Receipt Date: 20181129
  Transmission Date: 20190205
  Serious: Yes (Hospitalization)
  Sender: FDA-Public Use
  Company Number: BE-ABBVIE-18S-013-2564612-00

PATIENT
  Age: 70 Year
  Sex: Female

DRUGS (4)
  1. DUODOPA [Suspect]
     Active Substance: CARBIDOPA\LEVODOPA
     Indication: PARKINSON^S DISEASE
     Dosage: MD=4ML CD=1.9ML/HR DURING 16HRS  ED=1ML
     Route: 050
     Dates: start: 20181112, end: 20181115
  2. DUODOPA [Suspect]
     Active Substance: CARBIDOPA\LEVODOPA
     Dosage: MD=3.5ML CD=1.8ML/HR DURING 16HRS  ED=1ML
     Route: 050
     Dates: start: 20181116, end: 20181119
  3. DUODOPA [Suspect]
     Active Substance: CARBIDOPA\LEVODOPA
     Dosage: MD=3.5ML, CD=1.8ML/HR DURING 16HRS, ED=1ML
     Route: 050
     Dates: start: 20181119
  4. DUODOPA [Suspect]
     Active Substance: CARBIDOPA\LEVODOPA
     Dosage: MD=3.5ML CD=1.8ML/HR DURING 16HRS  ED=1ML
     Route: 050
     Dates: start: 20181115, end: 20181116

REACTIONS (2)
  - Incorrect route of product administration [Recovered/Resolved]
  - Device dislocation [Recovered/Resolved]

NARRATIVE: CASE EVENT DATE: 201811
